FAERS Safety Report 22011940 (Version 1)
Quarter: 2023Q1

REPORT INFORMATION
  Report Type: Report from Study
  Country: MX (occurrence: MX)
  Receive Date: 20230220
  Receipt Date: 20230220
  Transmission Date: 20230417
  Serious: Yes (Other)
  Sender: FDA-Public Use
  Company Number: MX-BAYER-2023A019352

PATIENT
  Age: 72 Year
  Sex: Male

DRUGS (1)
  1. NEXAVAR [Suspect]
     Active Substance: SORAFENIB
     Indication: Hepatocellular carcinoma
     Dosage: 400 MG, BID (400 MILLIGRAMS IN THE MORNING AND 400 MILLIGRAMS IN THE EVENING )
     Route: 048
     Dates: start: 20220531

REACTIONS (7)
  - Muscular weakness [Not Recovered/Not Resolved]
  - Fall [Not Recovered/Not Resolved]
  - Pain in extremity [Not Recovered/Not Resolved]
  - Burning sensation [Recovered/Resolved with Sequelae]
  - Fine motor skill dysfunction [Recovered/Resolved with Sequelae]
  - Pain [None]
  - Photosensitivity reaction [None]

NARRATIVE: CASE EVENT DATE: 20220531
